FAERS Safety Report 23091063 (Version 2)
Quarter: 2023Q4

REPORT INFORMATION
  Report Type: Spontaneous
  Country: US (occurrence: US)
  Receive Date: 20231020
  Receipt Date: 20231205
  Transmission Date: 20240110
  Serious: No
  Sender: FDA-Public Use
  Company Number: US-SA-SAC20231017000046

PATIENT
  Age: 77 Year
  Sex: Male

DRUGS (2)
  1. CAPRELSA [Suspect]
     Active Substance: VANDETANIB
     Indication: Thyroid cancer
     Dosage: 300 MG, QD
     Route: 048
  2. CAPRELSA [Suspect]
     Active Substance: VANDETANIB
     Dosage: 300MG

REACTIONS (1)
  - Surgery [Unknown]
